FAERS Safety Report 9491919 (Version 1)
Quarter: 2013Q3

REPORT INFORMATION
  Report Type: Report from Study
  Country: US (occurrence: US)
  Receive Date: 20130830
  Receipt Date: 20130830
  Transmission Date: 20140515
  Serious: Yes (Hospitalization)
  Sender: FDA-Public Use
  Company Number: US-UCBSA-096067

PATIENT
  Age: 22 Year
  Sex: Male

DRUGS (15)
  1. CIMZIA [Suspect]
     Indication: CROHN^S DISEASE
     Dosage: AT WEEKS 0, 2 AND 4 AND THEN EVERY 4 WEEKS THEREAFTER
     Route: 058
     Dates: start: 20130214, end: 2013
  2. CIMZIA [Suspect]
     Indication: CROHN^S DISEASE
     Route: 058
     Dates: start: 2013
  3. FAMOTIDINE [Concomitant]
     Indication: PROPHYLAXIS AGAINST GASTROINTESTINAL ULCER
  4. CIPRO [Concomitant]
     Indication: CROHN^S DISEASE
     Route: 048
     Dates: start: 20121206, end: 20130217
  5. CIPRO [Concomitant]
     Indication: ENTEROCUTANEOUS FISTULA
     Route: 048
     Dates: start: 20121206, end: 20130217
  6. CIPRO [Concomitant]
     Indication: CROHN^S DISEASE
     Route: 048
     Dates: start: 20130302
  7. CIPRO [Concomitant]
     Indication: ENTEROCUTANEOUS FISTULA
     Route: 048
     Dates: start: 20130302
  8. FLAGYL [Concomitant]
     Indication: CROHN^S DISEASE
     Route: 048
     Dates: start: 20121206
  9. FLAGYL [Concomitant]
     Indication: FISTULA
     Route: 048
     Dates: start: 20121206
  10. FLAGYL [Concomitant]
     Indication: CROHN^S DISEASE
     Route: 048
     Dates: start: 20130326
  11. FLAGYL [Concomitant]
     Indication: FISTULA
     Route: 048
     Dates: start: 20130326
  12. MIRTAZAPINE [Concomitant]
     Indication: DEPRESSION
     Dosage: DAILY DOSE : 30 MG
     Route: 048
  13. MIRTAZAPINE [Concomitant]
     Indication: DEPRESSION
     Dosage: DAILY DOSE : 15 MG
     Route: 048
  14. NYSTATIN [Concomitant]
     Indication: RASH
     Dosage: 10,000 UNITE POWDER
     Dates: start: 2013
  15. MULTI VITAMIN [Concomitant]
     Indication: VITAMIN SUPPLEMENTATION
     Route: 048
     Dates: start: 2013

REACTIONS (1)
  - Device related infection [Recovered/Resolved]
